FAERS Safety Report 21596199 (Version 1)
Quarter: 2022Q4

REPORT INFORMATION
  Report Type: Report from Study
  Country: AT (occurrence: AT)
  Receive Date: 20221115
  Receipt Date: 20221115
  Transmission Date: 20230112
  Serious: Yes (Death, Life-Threatening, Other)
  Sender: FDA-Public Use
  Company Number: AT-CHIESI-2022CHF04633

PATIENT
  Age: 55 Year
  Sex: Male

DRUGS (4)
  1. CANGRELOR [Suspect]
     Active Substance: CANGRELOR
     Indication: Coronary artery disease
     Dosage: UNK
  2. CANGRELOR [Suspect]
     Active Substance: CANGRELOR
     Indication: Percutaneous coronary intervention
  3. ASPIRIN [Concomitant]
     Active Substance: ASPIRIN
     Indication: Coronary artery disease
     Dosage: UNK
  4. ASPIRIN [Concomitant]
     Active Substance: ASPIRIN
     Indication: Percutaneous coronary intervention

REACTIONS (3)
  - Death [Fatal]
  - Cardiac arrest [Unknown]
  - Off label use [Recovered/Resolved]
